FAERS Safety Report 23196324 (Version 2)
Quarter: 2024Q3

REPORT INFORMATION
  Report Type: Spontaneous
  Country: DE (occurrence: DE)
  Receive Date: 20231117
  Receipt Date: 20240704
  Transmission Date: 20241017
  Serious: Yes (Hospitalization, Other)
  Sender: TORRENT
  Company Number: None

PATIENT
  Age: 1 Day
  Sex: Female
  Weight: 3 kg

DRUGS (3)
  1. OLANZAPINE [Suspect]
     Active Substance: OLANZAPINE
     Indication: Product used for unknown indication
     Dosage: MOTHER DOSE: 5 [MG/D]/ SINCE 2012
     Route: 064
  2. VENLAFAXINE [Suspect]
     Active Substance: VENLAFAXINE HYDROCHLORIDE
     Indication: Product used for unknown indication
     Dosage: MOTHER DOSE: 225 [MG/D ]/ SINCE 2012
     Route: 064
  3. LEVOTHYROXINE SODIUM [Concomitant]
     Active Substance: LEVOTHYROXINE SODIUM
     Indication: Product used for unknown indication
     Dosage: PERIOD UNKNOWN, DOSAGE QUESTIONABLE
     Route: 064

REACTIONS (4)
  - Respiratory disorder neonatal [Recovered/Resolved]
  - Foetal exposure during pregnancy [Unknown]
  - Hypotonia neonatal [Recovered/Resolved]
  - Cyanosis neonatal [Recovered/Resolved]

NARRATIVE: CASE EVENT DATE: 20230801
